FAERS Safety Report 19903192 (Version 1)
Quarter: 2021Q4

REPORT INFORMATION
  Report Type: Spontaneous
  Country: DZ (occurrence: DZ)
  Receive Date: 20211001
  Receipt Date: 20211001
  Transmission Date: 20220303
  Serious: Yes (Death, Other)
  Sender: FDA-Public Use
  Company Number: DZ-BIOVITRUM-2021DZ8756

PATIENT
  Age: 52 Day
  Sex: Female

DRUGS (1)
  1. ORFADIN [Suspect]
     Active Substance: NITISINONE
     Indication: Tyrosinaemia
     Route: 048
     Dates: start: 20210621

REACTIONS (1)
  - Death [Fatal]
